FAERS Safety Report 17048514 (Version 1)
Quarter: 2019Q4

REPORT INFORMATION
  Report Type: Report from Study
  Country: IT (occurrence: IT)
  Receive Date: 20191119
  Receipt Date: 20191119
  Transmission Date: 20200122
  Serious: Yes (Other)
  Sender: FDA-Public Use
  Company Number: IT-MYLANLABS-2019M1109495

PATIENT
  Age: 34 Year
  Sex: Female

DRUGS (3)
  1. SERTRALINE [Suspect]
     Active Substance: SERTRALINE HYDROCHLORIDE
     Indication: INSOMNIA
     Dosage: 750 MILLIGRAM, ONCE
     Route: 048
     Dates: start: 20190502, end: 20190502
  2. TAVOR (LORAZEPAM) [Suspect]
     Active Substance: LORAZEPAM
     Indication: INSOMNIA
     Dosage: 37.5 MILLIGRAM, ONCE
     Route: 048
     Dates: start: 20190502, end: 20190502
  3. OLANZAPINE. [Concomitant]
     Active Substance: OLANZAPINE
     Indication: PERSONALITY DISORDER
     Dosage: 5 MILLIGRAM, QD
     Route: 048

REACTIONS (2)
  - Somnolence [Not Recovered/Not Resolved]
  - Drug abuse [Not Recovered/Not Resolved]

NARRATIVE: CASE EVENT DATE: 20190502
